FAERS Safety Report 23260822 (Version 1)
Quarter: 2023Q4

REPORT INFORMATION
  Report Type: Spontaneous
  Country: US (occurrence: US)
  Receive Date: 20231205
  Receipt Date: 20231205
  Transmission Date: 20240109
  Serious: No
  Sender: FDA-Public Use
  Company Number: US-ELI_LILLY_AND_COMPANY-US202312000108

PATIENT
  Sex: Female

DRUGS (10)
  1. TALTZ [Suspect]
     Active Substance: IXEKIZUMAB
     Indication: Psoriasis
     Dosage: 80 MG, UNKNOWN
     Route: 058
  2. TALTZ [Suspect]
     Active Substance: IXEKIZUMAB
     Indication: Psoriatic arthropathy
  3. ENBREL [Concomitant]
     Active Substance: ETANERCEPT
     Indication: Psoriatic arthropathy
  4. ENBREL [Concomitant]
     Active Substance: ETANERCEPT
     Indication: Psoriasis
  5. SIMPONI ARIA [Concomitant]
     Active Substance: GOLIMUMAB
     Indication: Psoriatic arthropathy
  6. SIMPONI ARIA [Concomitant]
     Active Substance: GOLIMUMAB
     Indication: Psoriasis
  7. RINVOQ [Concomitant]
     Active Substance: UPADACITINIB
     Indication: Psoriatic arthropathy
  8. RINVOQ [Concomitant]
     Active Substance: UPADACITINIB
     Indication: Psoriasis
  9. HUMIRA [Concomitant]
     Active Substance: ADALIMUMAB
     Indication: Psoriatic arthropathy
  10. HUMIRA [Concomitant]
     Active Substance: ADALIMUMAB
     Indication: Psoriasis

REACTIONS (2)
  - Drug ineffective [Unknown]
  - Psoriasis [Unknown]
